FAERS Safety Report 23399287 (Version 1)
Quarter: 2024Q1

REPORT INFORMATION
  Report Type: Spontaneous
  Country: US (occurrence: US)
  Receive Date: 20240113
  Receipt Date: 20240113
  Transmission Date: 20240409
  Serious: No
  Sender: FDA-Public Use
  Company Number: US-E2BLSMVVAL-SPO/USA/24/0000468

PATIENT
  Age: 9 Year
  Sex: Male
  Weight: 31.52 kg

DRUGS (7)
  1. SAPROPTERIN DIHYDROCHLORIDE [Suspect]
     Active Substance: SAPROPTERIN DIHYDROCHLORIDE
     Indication: Hyperphenylalaninaemia
     Route: 048
  2. SAPROPTERIN DIHYDROCHLORIDE [Suspect]
     Active Substance: SAPROPTERIN DIHYDROCHLORIDE
     Indication: Phenylketonuria
  3. IBUPROFEN [Concomitant]
     Active Substance: IBUPROFEN
  4. Elderberry zinc [Concomitant]
     Dosage: 90 MG-15 MG LOZENGE
  5. Phenyl free 222G-410 Powder [Concomitant]
  6. Multivitamin gummies [Concomitant]
  7. OMEGA 3 [Concomitant]
     Active Substance: CAPSAICIN
     Dosage: 684-1200MG CAPSULE

REACTIONS (1)
  - Adverse event [Unknown]
